FAERS Safety Report 15276443 (Version 1)
Quarter: 2018Q3

REPORT INFORMATION
  Report Type: Spontaneous
  Country: US (occurrence: US)
  Receive Date: 20180814
  Receipt Date: 20180814
  Transmission Date: 20181010
  Serious: Yes (Other)
  Sender: FDA-Public Use
  Company Number: US-AMGEN-USASP2018095064

PATIENT
  Age: 74 Year
  Sex: Male

DRUGS (1)
  1. REPATHA [Suspect]
     Active Substance: EVOLOCUMAB
     Indication: TYPE IIA HYPERLIPIDAEMIA
     Dosage: UNK
     Route: 065

REACTIONS (8)
  - Weight decreased [Recovered/Resolved]
  - Dyspepsia [Not Recovered/Not Resolved]
  - Dermatitis allergic [Not Recovered/Not Resolved]
  - Low density lipoprotein decreased [Recovered/Resolved]
  - Blood triglycerides decreased [Recovered/Resolved]
  - Inflammation [Recovered/Resolved]
  - Muscle atrophy [Recovered/Resolved]
  - High density lipoprotein decreased [Recovered/Resolved]
